FAERS Safety Report 20682492 (Version 1)
Quarter: 2022Q2

REPORT INFORMATION
  Report Type: Spontaneous
  Country: US (occurrence: US)
  Receive Date: 20220407
  Receipt Date: 20220407
  Transmission Date: 20220721
  Serious: Yes (Hospitalization)
  Sender: FDA-Public Use
  Company Number: US-BRISTOL-MYERS SQUIBB COMPANY-2022-014293

PATIENT
  Sex: Female

DRUGS (1)
  1. REVLIMID [Suspect]
     Active Substance: LENALIDOMIDE
     Indication: Plasmacytoma
     Dosage: 1 CAPSULE BY MOUTH EVERYDAY ON DAYS 1-14 THEN FOLLOWED BY 7 DAYS OFF; TAKE WHOLE WITH WATER, DO NOT
     Route: 048

REACTIONS (2)
  - Hospitalisation [Unknown]
  - Intentional product use issue [Unknown]
